FAERS Safety Report 9467447 (Version 1)
Quarter: 2013Q3

REPORT INFORMATION
  Report Type: Report from Study
  Country: US (occurrence: US)
  Receive Date: 20130821
  Receipt Date: 20130821
  Transmission Date: 20140515
  Serious: Yes (Hospitalization)
  Sender: FDA-Public Use
  Company Number: PHEH2013US017652

PATIENT
  Sex: Male
  Weight: 78.46 kg

DRUGS (9)
  1. ZOMETA [Suspect]
     Indication: PLASMA CELL MYELOMA
     Dosage: 4 MG, UNK
  2. DEXAMETHASON ^COPHAR^ [Concomitant]
  3. ALLEGRA [Concomitant]
  4. ENALAPRIL [Concomitant]
  5. SIMVASTATIN [Concomitant]
  6. HYDROCHLOROTH [Concomitant]
  7. METOPROLOL [Concomitant]
  8. CLOPIDOGREL [Concomitant]
  9. REVLIMID [Concomitant]

REACTIONS (1)
  - Blood glucose increased [Unknown]
